FAERS Safety Report 7138418-9 (Version None)
Quarter: 2010Q4

REPORT INFORMATION
  Report Type: 
  Country: None (occurrence: None)
  Receive Date: 20101206
  Receipt Date: 20101124
  Transmission Date: 20110411
  Serious: Yes (Hospitalization, Other)
  Sender: FDA-Public Use
  Company Number: IN-ELI_LILLY_AND_COMPANY-IN200805000536

PATIENT
  Sex: Female
  Weight: 58 kg

DRUGS (15)
  1. GEMCITABINE HCL [Suspect]
     Indication: BREAST CANCER
     Dosage: 1000 MG/M2, OTHER DAY 1+8 EVERY 3 WEEKS
     Route: 042
     Dates: start: 20080326
  2. VINFLUNINE [Suspect]
     Indication: BREAST CANCER
     Dosage: 320 MG/M2, OTHER DAY ONE EVERY 3 WEEKS
     Route: 042
     Dates: start: 20080326
  3. DEXAMETHASONE [Concomitant]
     Dosage: UNK, UNKNOWN
     Route: 065
     Dates: start: 20080326, end: 20080326
  4. DEXAMETHASONE [Concomitant]
     Dosage: UNK, UNKNOWN
     Route: 065
     Dates: start: 20080402, end: 20080402
  5. SETRON [Concomitant]
     Dosage: UNK, UNKNOWN
     Route: 065
     Dates: start: 20080326, end: 20080326
  6. SETRON [Concomitant]
     Dosage: UNK, UNKNOWN
     Route: 065
     Dates: start: 20080402, end: 20080402
  7. FUROSEMIDE [Concomitant]
     Dosage: UNK, UNKNOWN
     Route: 065
     Dates: start: 20080326, end: 20080326
  8. FUROSEMIDE [Concomitant]
     Dosage: UNK, UNKNOWN
     Route: 065
     Dates: start: 20080402, end: 20080402
  9. RANITIDINE [Concomitant]
     Dosage: UNK, UNKNOWN
     Route: 065
     Dates: start: 20080326, end: 20080401
  10. RANITIDINE [Concomitant]
     Dosage: UNK, UNKNOWN
     Route: 065
     Dates: start: 20080402, end: 20080406
  11. RINGER'S [Concomitant]
     Dosage: UNK, UNKNOWN
     Route: 065
     Dates: start: 20080326, end: 20080326
  12. RINGER'S [Concomitant]
     Dosage: UNK, UNKNOWN
     Route: 065
     Dates: start: 20080402, end: 20080402
  13. ACTRAPID HUMAN [Concomitant]
     Dosage: UNK, UNKNOWN
     Route: 065
     Dates: start: 20080326, end: 20080326
  14. BISPHOSPHONATES [Concomitant]
     Dosage: UNK, UNKNOWN
     Route: 065
     Dates: start: 20080327, end: 20080327
  15. DUPHALAC [Concomitant]
     Dosage: UNK, UNKNOWN
     Route: 065
     Dates: start: 20080328, end: 20080408

REACTIONS (8)
  - DIARRHOEA [None]
  - DYSPNOEA [None]
  - HYPERGLYCAEMIA [None]
  - HYPONATRAEMIA [None]
  - LOCALISED INFECTION [None]
  - METABOLIC ACIDOSIS [None]
  - NEUTROPENIA [None]
  - RESPIRATORY ALKALOSIS [None]
